FAERS Safety Report 15476065 (Version 1)
Quarter: 2018Q4

REPORT INFORMATION
  Report Type: Report from Study
  Country: GB (occurrence: GB)
  Receive Date: 20181009
  Receipt Date: 20181009
  Transmission Date: 20190205
  Serious: Yes (Hospitalization)
  Sender: FDA-Public Use
  Company Number: PHHY2018GB119544

PATIENT
  Sex: Female

DRUGS (1)
  1. COSENTYX [Suspect]
     Active Substance: SECUKINUMAB
     Indication: PSORIATIC ARTHROPATHY
     Dosage: 150 MG, QMO
     Route: 058
     Dates: start: 20180803

REACTIONS (7)
  - Drug ineffective [Unknown]
  - Mouth ulceration [Unknown]
  - Rhinorrhoea [Unknown]
  - Cough [Unknown]
  - Flushing [Unknown]
  - Dizziness [Unknown]
  - Swelling face [Unknown]
